FAERS Safety Report 23942361 (Version 1)
Quarter: 2024Q2

REPORT INFORMATION
  Report Type: Report from Study
  Country: US (occurrence: US)
  Receive Date: 20240605
  Receipt Date: 20240605
  Transmission Date: 20240716
  Serious: Yes (Other)
  Sender: FDA-Public Use
  Company Number: US-BAYER-2024A079403

PATIENT
  Age: 73 Year
  Sex: Male
  Weight: 95.238 kg

DRUGS (16)
  1. ADEMPAS [Suspect]
     Active Substance: RIOCIGUAT
     Indication: Pulmonary arterial hypertension
     Dosage: UNK
     Dates: start: 20240222
  2. ADEMPAS [Suspect]
     Active Substance: RIOCIGUAT
     Indication: Pulmonary arterial hypertension
     Dosage: 2 MG, TID
     Route: 048
  3. JARDIANCE [Concomitant]
     Active Substance: EMPAGLIFLOZIN
  4. DOCUSATE SODIUM [Concomitant]
     Active Substance: DOCUSATE SODIUM
  5. METFORMIN HYDROCHLORIDE [Concomitant]
     Active Substance: METFORMIN HYDROCHLORIDE
  6. ROSUVASTATIN CALCIUM [Concomitant]
     Active Substance: ROSUVASTATIN CALCIUM
  7. TRAZODONE HCL [Concomitant]
     Active Substance: TRAZODONE HYDROCHLORIDE
  8. TAMSULOSIN HYDROCHLORIDE [Concomitant]
     Active Substance: TAMSULOSIN HYDROCHLORIDE
  9. MIRTAZAPINE [Concomitant]
     Active Substance: MIRTAZAPINE
  10. BUPROPION HYDROCHLORIDE XL [Concomitant]
     Active Substance: BUPROPION HYDROCHLORIDE
  11. MELATONIN [Concomitant]
     Active Substance: MELATONIN
  12. ELIQUIS [Concomitant]
     Active Substance: APIXABAN
  13. VITAMINS [Concomitant]
     Active Substance: VITAMINS
  14. LIDOCAINE [Concomitant]
     Active Substance: LIDOCAINE
  15. POLYETHYLENE GLYCOL [Concomitant]
     Active Substance: POLYETHYLENE GLYCOL
  16. KRILL OIL [Concomitant]
     Active Substance: DIETARY SUPPLEMENT\KRILL OIL

REACTIONS (2)
  - Illness [None]
  - Bedridden [None]

NARRATIVE: CASE EVENT DATE: 20240512
